FAERS Safety Report 8557267-8 (Version None)
Quarter: 2012Q3

REPORT INFORMATION
  Report Type: 
  Country: None (occurrence: None)
  Receive Date: 20120801
  Receipt Date: 20120723
  Transmission Date: 20120928
  Serious: Yes (Other)
  Sender: FDA-Public Use
  Company Number: US-ASTRAZENECA-2011SE47794

PATIENT
  Age: 67 Year
  Sex: Female

DRUGS (8)
  1. LISINOPRIL [Suspect]
     Route: 048
  2. NEXIUM [Suspect]
     Route: 048
  3. AMITRIPTLINE HYDROCHLORIDE TAB [Suspect]
  4. ATENOLOL [Suspect]
     Route: 048
  5. CRESTOR [Suspect]
     Route: 048
  6. NAMENDA [Concomitant]
  7. ZOLOFT [Suspect]
     Route: 065
  8. FUROSEMIDE [Suspect]

REACTIONS (8)
  - FALL [None]
  - MEMORY IMPAIRMENT [None]
  - HEAD INJURY [None]
  - ADVERSE EVENT [None]
  - CEREBRAL HAEMORRHAGE [None]
  - CEREBROVASCULAR ACCIDENT [None]
  - DEMENTIA [None]
  - MALAISE [None]
